FAERS Safety Report 9629030 (Version 7)
Quarter: 2014Q1

REPORT INFORMATION
  Report Type: Report from Study
  Country: SG (occurrence: SG)
  Receive Date: 20131017
  Receipt Date: 20140207
  Transmission Date: 20141002
  Serious: Yes (Hospitalization)
  Sender: FDA-Public Use
  Company Number: SG-PFIZER INC-2013289532

PATIENT
  Age: 37 Year
  Sex: Male
  Weight: 137.8 kg

DRUGS (4)
  1. TOFACITINIB CITRATE [Suspect]
     Indication: PSORIASIS
     Dosage: UNK
     Route: 048
     Dates: start: 20121018, end: 20131001
  2. AMLODIPINE BESILATE [Concomitant]
     Indication: HYPERTENSION
     Dosage: 10 MG, 1X/DAY(AT NIGHT)
     Route: 048
     Dates: start: 20120518
  3. VENTOLIN [Concomitant]
     Indication: ASTHMA
     Dosage: 200UG (QDS, PRN)
     Route: 045
  4. LISINOPRIL [Concomitant]
     Indication: HYPERTENSION
     Dosage: 10 MG, 1X/DAY OM
     Route: 048
     Dates: start: 20120518

REACTIONS (1)
  - Appendicitis [Recovered/Resolved]
